FAERS Safety Report 20539341 (Version 2)
Quarter: 2022Q2

REPORT INFORMATION
  Report Type: Spontaneous
  Country: US (occurrence: US)
  Receive Date: 20220302
  Receipt Date: 20220410
  Transmission Date: 20220721
  Serious: Yes (Other)
  Sender: FDA-Public Use
  Company Number: US-FRESENIUS KABI-FK202202320

PATIENT
  Sex: Male

DRUGS (1)
  1. SMOFLIPID [Suspect]
     Active Substance: FISH OIL\MEDIUM-CHAIN TRIGLYCERIDES\OLIVE OIL\SOYBEAN OIL
     Indication: Parenteral nutrition
     Route: 065

REACTIONS (4)
  - Intestinal stenosis [Unknown]
  - Malabsorption [Unknown]
  - Hepatic failure [Unknown]
  - Disease progression [Unknown]
